FAERS Safety Report 17614545 (Version 6)
Quarter: 2020Q2

REPORT INFORMATION
  Report Type: Spontaneous
  Country: JP (occurrence: JP)
  Receive Date: 20200402
  Receipt Date: 20200630
  Transmission Date: 20200713
  Serious: Yes (Other)
  Sender: FDA-Public Use
  Company Number: JP-ASTELLAS-2020JP005628

PATIENT
  Age: 71 Year
  Sex: Male

DRUGS (3)
  1. XOSPATA [Suspect]
     Active Substance: GILTERITINIB
     Route: 048
  2. XOSPATA [Suspect]
     Active Substance: GILTERITINIB
     Indication: ACUTE MYELOID LEUKAEMIA
     Route: 048
     Dates: start: 20200325, end: 20200328
  3. XOSPATA [Suspect]
     Active Substance: GILTERITINIB
     Route: 048
     Dates: start: 20200401

REACTIONS (5)
  - Platelet count decreased [Recovered/Resolved]
  - Renal impairment [Recovering/Resolving]
  - Liver disorder [Not Recovered/Not Resolved]
  - Neutropenia [Recovered/Resolved]
  - Tumour lysis syndrome [Recovered/Resolved]

NARRATIVE: CASE EVENT DATE: 20200401
